FAERS Safety Report 7234470-0 (Version None)
Quarter: 2011Q1

REPORT INFORMATION
  Report Type: 
  Country: None (occurrence: None)
  Receive Date: 20110119
  Receipt Date: 20110118
  Transmission Date: 20110831
  Serious: Yes (Other)
  Sender: FDA-Public Use
  Company Number: US-AMGEN-USASP2011003098

PATIENT

DRUGS (1)
  1. NPLATE [Suspect]
     Indication: PRODUCT USED FOR UNKNOWN INDICATION
     Dates: start: 20090601

REACTIONS (4)
  - MENTAL IMPAIRMENT [None]
  - CHEST PAIN [None]
  - PLATELET COUNT ABNORMAL [None]
  - FEELING COLD [None]
